FAERS Safety Report 15667059 (Version 1)
Quarter: 2018Q4

REPORT INFORMATION
  Report Type: Spontaneous
  Country: US (occurrence: US)
  Receive Date: 20181128
  Receipt Date: 20181128
  Transmission Date: 20190205
  Serious: No
  Sender: FDA-Public Use
  Company Number: US-ROCHE-2175852

PATIENT
  Sex: Female
  Weight: 104.42 kg

DRUGS (12)
  1. CITALOPRAM [Concomitant]
     Active Substance: CITALOPRAM HYDROBROMIDE
     Dosage: ONGOING: YES
     Route: 065
  2. AMANTADINE. [Concomitant]
     Active Substance: AMANTADINE HYDROCHLORIDE
     Indication: MUSCLE SPASMS
     Dosage: ONGOING: YES
     Route: 065
  3. INSULIN [Concomitant]
     Active Substance: INSULIN NOS
     Indication: DIABETES MELLITUS
     Dosage: ONGOING: YES
     Route: 065
  4. VITAMIN D3 [Concomitant]
     Active Substance: CHOLECALCIFEROL
     Dosage: ONGOING: YES
     Route: 065
  5. MECLIZINE [Concomitant]
     Active Substance: MECLIZINE HYDROCHLORIDE
     Dosage: ONGOING: YES
     Route: 065
  6. PYRIDOSTIGMINE [Concomitant]
     Active Substance: PYRIDOSTIGMINE
     Dosage: ONGOING: YES
     Route: 065
  7. GABAPENTIN. [Concomitant]
     Active Substance: GABAPENTIN
     Indication: MUSCLE SPASMS
     Dosage: ONGOING: YES
     Route: 065
  8. DIAZEPAM. [Concomitant]
     Active Substance: DIAZEPAM
     Dosage: ONGOING: YES
     Route: 065
  9. DANTROLENE. [Concomitant]
     Active Substance: DANTROLENE SODIUM
     Dosage: ONGOING: YES
     Route: 065
  10. JANUVIA [Concomitant]
     Active Substance: SITAGLIPTIN PHOSPHATE
     Indication: DIABETES MELLITUS
     Dosage: ONGOING: YES
     Route: 065
  11. VITAMIN A [Concomitant]
     Active Substance: VITAMIN A
     Dosage: ONGOING: YES
     Route: 065
  12. OCREVUS [Suspect]
     Active Substance: OCRELIZUMAB
     Indication: RELAPSING-REMITTING MULTIPLE SCLEROSIS
     Dosage: ON 09/AUG/2018, SHE RECEIVED HER SECOND INFUSION OF OCRELIZUMAB.
     Route: 042

REACTIONS (4)
  - Drug ineffective [Unknown]
  - Fall [Unknown]
  - Malaise [Unknown]
  - Fatigue [Unknown]
